FAERS Safety Report 7409090-5 (Version None)
Quarter: 2011Q1

REPORT INFORMATION
  Report Type: 
  Country: None (occurrence: None)
  Receive Date: 20110301
  Receipt Date: 20100129
  Transmission Date: 20110831
  Serious: Yes (Hospitalization, Other)
  Sender: FDA-Public Use
  Company Number: RB-17199-2009

PATIENT
  Sex: Male
  Weight: 8.7 kg

DRUGS (4)
  1. SUBUTEX [Suspect]
     Indication: PRODUCT USED FOR UNKNOWN INDICATION
     Dosage: 3 MG QD TRANSPLACENTAL, 2 MG QD TRANSPLACENTAL, 1 MG QD TRANSPLACENTAL
     Route: 064
     Dates: start: 20081229, end: 20090101
  2. SUBUTEX [Suspect]
     Indication: PRODUCT USED FOR UNKNOWN INDICATION
     Dosage: 3 MG QD TRANSPLACENTAL, 2 MG QD TRANSPLACENTAL, 1 MG QD TRANSPLACENTAL
     Route: 064
     Dates: start: 20081013, end: 20081228
  3. SUBUTEX [Suspect]
     Indication: PRODUCT USED FOR UNKNOWN INDICATION
     Dosage: 3 MG QD TRANSPLACENTAL, 2 MG QD TRANSPLACENTAL, 1 MG QD TRANSPLACENTAL
     Route: 064
     Dates: start: 20090101, end: 20090608
  4. SUBOXONE [Suspect]
     Indication: PRODUCT USED FOR UNKNOWN INDICATION
     Dosage: 12 MG QD TRANSPLACENTAL
     Route: 064
     Dates: start: 20080101, end: 20081012

REACTIONS (1)
  - DRUG WITHDRAWAL SYNDROME NEONATAL [None]
